FAERS Safety Report 22348147 (Version 21)
Quarter: 2025Q1

REPORT INFORMATION
  Report Type: Report from Study
  Country: US (occurrence: US)
  Receive Date: 20230522
  Receipt Date: 20250310
  Transmission Date: 20250408
  Serious: Yes (Other)
  Sender: TAKEDA
  Company Number: US-TAKEDA-2023TUS049646

PATIENT
  Sex: Female
  Weight: 91 kg

DRUGS (30)
  1. HUMAN IMMUNOGLOBULIN G [Suspect]
     Active Substance: HUMAN IMMUNOGLOBULIN G
     Indication: Selective IgG subclass deficiency
     Dosage: 10 GRAM, 1/WEEK
  2. DIPHENHYDRAMINE HYDROCHLORIDE [Concomitant]
     Active Substance: DIPHENHYDRAMINE HYDROCHLORIDE
  3. CEFACLOR [Concomitant]
     Active Substance: CEFACLOR
  4. TRELEGY ELLIPTA [Concomitant]
     Active Substance: FLUTICASONE FUROATE\UMECLIDINIUM BROMIDE\VILANTEROL TRIFENATATE
  5. MAGNESIUM [Concomitant]
     Active Substance: MAGNESIUM
  6. METOPROLOL SUCCINATE [Concomitant]
     Active Substance: METOPROLOL SUCCINATE
  7. BUDESONIDE [Concomitant]
     Active Substance: BUDESONIDE
  8. EPINEPHRINE [Concomitant]
     Active Substance: EPINEPHRINE
  9. VITAMIN D3 [Concomitant]
     Active Substance: CHOLECALCIFEROL
  10. ALLEGRA ALLERGY [Concomitant]
     Active Substance: FEXOFENADINE HYDROCHLORIDE
  11. POTASSIUM CHLORIDE [Concomitant]
     Active Substance: POTASSIUM CHLORIDE
  12. LEVOCETIRIZINE DIHYDROCHLORIDE [Concomitant]
     Active Substance: LEVOCETIRIZINE DIHYDROCHLORIDE
  13. PREDNISONE [Concomitant]
     Active Substance: PREDNISONE
  14. ACETAMINOPHEN [Concomitant]
     Active Substance: ACETAMINOPHEN
  15. FLONASE ALLERGY RELIEF [Concomitant]
     Active Substance: FLUTICASONE PROPIONATE
  16. ZINC [Concomitant]
     Active Substance: ZINC
  17. OXYGEN [Concomitant]
     Active Substance: OXYGEN
  18. TRAZODONE HCL [Concomitant]
     Active Substance: TRAZODONE HYDROCHLORIDE
  19. NITROGLYCERIN [Concomitant]
     Active Substance: NITROGLYCERIN
  20. LORATADINE [Concomitant]
     Active Substance: LORATADINE
  21. VITAMIN C [Concomitant]
     Active Substance: ASCORBIC ACID
  22. LASIX [Concomitant]
     Active Substance: FUROSEMIDE
  23. HYDROXYZINE HYDROCHLORIDE [Concomitant]
     Active Substance: HYDROXYZINE HYDROCHLORIDE
  24. ALBUTEROL SULFATE [Concomitant]
     Active Substance: ALBUTEROL SULFATE
  25. ELIQUIS [Concomitant]
     Active Substance: APIXABAN
  26. FISH OIL [Concomitant]
     Active Substance: FISH OIL
  27. Lmx [Concomitant]
  28. CYMBALTA [Concomitant]
     Active Substance: DULOXETINE HYDROCHLORIDE
  29. LIPITOR [Concomitant]
     Active Substance: ATORVASTATIN CALCIUM
  30. VITAMIN E [Concomitant]
     Active Substance: .ALPHA.-TOCOPHEROL

REACTIONS (28)
  - Bronchiolitis [Unknown]
  - COVID-19 pneumonia [Unknown]
  - Pneumonia [Unknown]
  - Infusion site scar [Unknown]
  - COVID-19 [Unknown]
  - Dry eye [Unknown]
  - Scar [Unknown]
  - Seasonal allergy [Unknown]
  - Viral infection [Recovering/Resolving]
  - Bronchitis [Unknown]
  - Illness [Unknown]
  - Urinary tract infection [Unknown]
  - Weight increased [Unknown]
  - Gastroenteritis viral [Unknown]
  - Infusion site rash [Unknown]
  - Sinusitis [Unknown]
  - Influenza [Unknown]
  - Injection site swelling [Unknown]
  - Somnolence [Unknown]
  - Abdominal tenderness [Recovering/Resolving]
  - Injection site pain [Unknown]
  - Infusion site bruising [Unknown]
  - Blood pressure increased [Unknown]
  - Pain [Unknown]
  - Muscle spasms [Unknown]
  - Infusion site swelling [Unknown]
  - Pyrexia [Unknown]
  - Headache [Unknown]
